FAERS Safety Report 6785770-X (Version None)
Quarter: 2010Q2

REPORT INFORMATION
  Report Type: 
  Country: None (occurrence: None)
  Receive Date: 20100622
  Receipt Date: 20100622
  Transmission Date: 20101027
  Serious: Yes (Hospitalization)
  Sender: FDA-Public Use
  Company Number: None

PATIENT
  Age: 59 Year
  Sex: Female
  Weight: 99 kg

DRUGS (18)
  1. COUMADIN [Suspect]
     Indication: CORONARY ARTERY DISEASE
     Dosage: 6 MG QHS PO CHRONIC W/ RECENT INCREASE
     Route: 048
  2. PLAVIX [Suspect]
     Indication: CORONARY ARTERY DISEASE
     Dosage: 75 MG DAILY PO CHRONIC
     Route: 048
  3. OMEPRAZOLE [Concomitant]
  4. TOPAMAX [Concomitant]
  5. ABILIFY [Concomitant]
  6. TRAZODONE HYDROCHLORIDE [Concomitant]
  7. CRESTOR [Concomitant]
  8. COMBIVENT [Concomitant]
  9. CYCLOBENZAPRINE [Concomitant]
  10. LEVOXYL [Concomitant]
  11. SERTRALINE HCL [Concomitant]
  12. NIASPAN [Concomitant]
  13. INSULIN [Concomitant]
  14. INSULIN GLARGINE [Concomitant]
  15. COREG [Concomitant]
  16. VIT D [Concomitant]
  17. SEROQUEL [Concomitant]
  18. AMBISOME [Concomitant]

REACTIONS (2)
  - INTERNATIONAL NORMALISED RATIO INCREASED [None]
  - INTESTINAL HAEMATOMA [None]
